FAERS Safety Report 19174716 (Version 1)
Quarter: 2021Q2

REPORT INFORMATION
  Report Type: Report from Study
  Country: DE (occurrence: DE)
  Receive Date: 20210423
  Receipt Date: 20210423
  Transmission Date: 20210717
  Serious: Yes (Other)
  Sender: FDA-Public Use
  Company Number: NVSC2021DE087188

PATIENT
  Sex: Male
  Weight: 125 kg

DRUGS (1)
  1. ENERZAIR [Suspect]
     Active Substance: GLYCOPYRROLATE\INDACATEROL\MOMETASONE FUROATE
     Indication: ASTHMA
     Dosage: 114 ?G INDACATEROL/  46 ?G GLYCOPYRRONIUM/ 136 ?G MOMETASONE
     Route: 055
     Dates: start: 20210319, end: 20210414

REACTIONS (1)
  - Urinary retention [Not Recovered/Not Resolved]
